FAERS Safety Report 6680325-X (Version None)
Quarter: 2010Q2

REPORT INFORMATION
  Report Type: 
  Country: None (occurrence: None)
  Receive Date: 20100412
  Receipt Date: 20100329
  Transmission Date: 20101027
  Serious: Yes (Other)
  Sender: FDA-Public Use
  Company Number: 230048J09USA

PATIENT
  Age: 40 Year
  Sex: Female

DRUGS (2)
  1. REBIF [Suspect]
     Indication: MULTIPLE SCLEROSIS
     Dosage: 44 MCG, 3 IN 1 WK,
     Dates: start: 20071220, end: 20080625
  2. INTRAVENOUS IMMUNE GLOBULIN (IMMUNOGLOBULIN) [Concomitant]

REACTIONS (5)
  - ARTERIAL OCCLUSIVE DISEASE [None]
  - HYPERHIDROSIS [None]
  - INJECTION SITE PAIN [None]
  - SURGICAL FAILURE [None]
  - VARICOSE VEIN [None]
